FAERS Safety Report 24095576 (Version 1)
Quarter: 2024Q3

REPORT INFORMATION
  Report Type: Spontaneous
  Country: US (occurrence: US)
  Receive Date: 20240716
  Receipt Date: 20240716
  Transmission Date: 20241017
  Serious: No
  Sender: VERO BIOTECH
  Company Number: US-VEROBIOTECH-2024USVEROSPO00141

PATIENT

DRUGS (1)
  1. GENOSYL [Suspect]
     Active Substance: NITRIC OXIDE
     Indication: Product used for unknown indication
     Dosage: N 20PPM NITRIC OXIDE (NO)  ON THE NIGHT OF 15-JUN-2024 WITH THE FLOW OF 40LPM VIA HEATED HIGH FLOW

REACTIONS (1)
  - Device issue [Unknown]
